FAERS Safety Report 11309837 (Version 1)
Quarter: 2015Q3

REPORT INFORMATION
  Report Type: Spontaneous
  Country: UA (occurrence: UA)
  Receive Date: 20150724
  Receipt Date: 20150724
  Transmission Date: 20151125
  Serious: Yes (Other)
  Sender: FDA-Public Use
  Company Number: UA-GE HEALTHCARE MEDICAL DIAGNOSTICS-VISP-PR-1507S-0276

PATIENT
  Age: 61 Year
  Sex: Female

DRUGS (7)
  1. CORDARON [Concomitant]
     Active Substance: AMIODARONE HYDROCHLORIDE
     Indication: MYOCARDIAL ISCHAEMIA
     Route: 048
     Dates: start: 20150701
  2. VISIPAQUE [Suspect]
     Active Substance: IODIXANOL
     Indication: DIAGNOSTIC PROCEDURE
  3. VISIPAQUE [Suspect]
     Active Substance: IODIXANOL
     Indication: HYPERTENSION
  4. VISIPAQUE [Suspect]
     Active Substance: IODIXANOL
     Indication: MYOCARDIAL ISCHAEMIA
     Route: 013
     Dates: start: 20150703, end: 20150703
  5. ATORIS [Concomitant]
     Active Substance: ATORVASTATIN CALCIUM
     Indication: MYOCARDIAL ISCHAEMIA
     Route: 048
     Dates: start: 20150701
  6. VISIPAQUE [Suspect]
     Active Substance: IODIXANOL
     Indication: CARDIAC FAILURE
  7. EPLERENONE KMP [Concomitant]
     Indication: MYOCARDIAL ISCHAEMIA
     Route: 048
     Dates: start: 20150701

REACTIONS (1)
  - Rash pruritic [Recovered/Resolved]

NARRATIVE: CASE EVENT DATE: 20150705
